FAERS Safety Report 16041163 (Version 1)
Quarter: 2019Q1

REPORT INFORMATION
  Report Type: Spontaneous
  Country: US (occurrence: US)
  Receive Date: 20190306
  Receipt Date: 20190306
  Transmission Date: 20190418
  Serious: No
  Sender: FDA-Public Use
  Company Number: US-AKORN PHARMACEUTICALS-2018AKN01772

PATIENT
  Sex: Female
  Weight: 58.96 kg

DRUGS (6)
  1. MYORISAN [Suspect]
     Active Substance: ISOTRETINOIN
     Indication: ACNE
     Dosage: SLOWLY INCREASED MONTHLY TO 100 MG, 1X/DAY
     Route: 048
     Dates: start: 20180713, end: 20181105
  2. TRIAMCINOLONE [Concomitant]
     Active Substance: TRIAMCINOLONE
     Dosage: UNK, AS NEEDED
  3. YAZ [Concomitant]
     Active Substance: DROSPIRENONE\ETHINYL ESTRADIOL
     Dosage: 1 TABLETS, 1X/DAY
  4. ISOTRETINOIN (AMNEAL) [Suspect]
     Active Substance: ISOTRETINOIN
     Dosage: 40 MG, 1X/DAY
     Route: 048
     Dates: start: 20180613, end: 2018
  5. ISOTRETINOIN (AMNEAL) [Suspect]
     Active Substance: ISOTRETINOIN
     Dosage: SLOWLY INCREASED MONTHLY TO 100 MG, 1X/DAY
     Route: 048
     Dates: start: 2018, end: 20181105
  6. MYORISAN [Suspect]
     Active Substance: ISOTRETINOIN
     Indication: ACNE
     Dosage: SLOWLY INCREASED MONTHLY TO 100 MG, 1X/DAY
     Route: 048
     Dates: start: 20180713, end: 20181105

REACTIONS (3)
  - Tachycardia [Unknown]
  - Palpitations [Unknown]
  - Bronchitis [Unknown]

NARRATIVE: CASE EVENT DATE: 2018
